FAERS Safety Report 12542511 (Version 1)
Quarter: 2016Q3

REPORT INFORMATION
  Report Type: Spontaneous
  Country: US (occurrence: US)
  Receive Date: 20160709
  Receipt Date: 20160709
  Transmission Date: 20161109
  Serious: Yes (Other)
  Sender: FDA-Public Use
  Company Number: US-CIPLA LTD.-2014US00259

PATIENT

DRUGS (3)
  1. CARBOPLATIN. [Suspect]
     Active Substance: CARBOPLATIN
     Indication: SMALL CELL LUNG CANCER EXTENSIVE STAGE
     Dosage: AUC 5 ON DAY 1 EVERY 21 DAYS)
     Route: 065
  2. PANOBINOSTAT [Suspect]
     Active Substance: PANOBINOSTAT
     Indication: SMALL CELL LUNG CANCER EXTENSIVE STAGE
     Dosage: 10 MG, THREE TIMES PER WEEK, GIVEN FOR 2 WEEKS
     Route: 048
  3. ETOPOSIDE. [Suspect]
     Active Substance: ETOPOSIDE
     Indication: SMALL CELL LUNG CANCER EXTENSIVE STAGE
     Dosage: 100 MG/M2, ON DAY 1, 2, AND 3 EVERY 21 DAYS)
     Route: 065

REACTIONS (2)
  - Disease progression [Unknown]
  - Thrombocytopenia [Unknown]
